FAERS Safety Report 7082765-6 (Version None)
Quarter: 2010Q4

REPORT INFORMATION
  Report Type: 
  Country: None (occurrence: None)
  Receive Date: 20101104
  Receipt Date: 20101029
  Transmission Date: 20110411
  Serious: Yes (Hospitalization)
  Sender: FDA-Public Use
  Company Number: US-BRISTOL-MYERS SQUIBB COMPANY-15293327

PATIENT
  Age: 57 Year
  Sex: Male
  Weight: 91 kg

DRUGS (4)
  1. ONGLYZA [Suspect]
     Indication: DIABETES MELLITUS
     Dosage: RECEIVED 5MG SAMPLES
     Route: 048
     Dates: start: 20100714
  2. ZOCOR [Suspect]
     Route: 048
  3. METFORMIN [Concomitant]
     Route: 048
  4. ZESTORETIC [Concomitant]
     Dosage: 1 DF = 125/20 UNIT NOT MENTIONED
     Route: 048

REACTIONS (1)
  - PANCREATITIS ACUTE [None]
